FAERS Safety Report 6194944-0 (Version None)
Quarter: 2009Q2

REPORT INFORMATION
  Report Type: 
  Country: None (occurrence: None)
  Receive Date: 20090515
  Receipt Date: 20090515
  Transmission Date: 20091009
  Serious: Yes (Hospitalization)
  Sender: FDA-Public Use
  Company Number: None

PATIENT
  Age: 40 Year
  Sex: Female
  Weight: 71.2147 kg

DRUGS (2)
  1. VENOFER [Suspect]
     Indication: DEFICIENCY ANAEMIA
     Dates: start: 20090513, end: 20090513
  2. VENOFER [Concomitant]

REACTIONS (2)
  - ANAPHYLACTIC SHOCK [None]
  - UNRESPONSIVE TO STIMULI [None]
